FAERS Safety Report 9100545 (Version 1)
Quarter: 2013Q1

REPORT INFORMATION
  Report Type: Spontaneous
  Country: US (occurrence: US)
  Receive Date: 20130215
  Receipt Date: 20130215
  Transmission Date: 20140127
  Serious: Yes (Other)
  Sender: FDA-Public Use
  Company Number: US-ABBOTT-13P-163-1050112-00

PATIENT
  Age: 62 Year
  Sex: Female

DRUGS (1)
  1. ERYTHROMYCIN [Suspect]
     Indication: PRODUCT USED FOR UNKNOWN INDICATION
     Route: 042

REACTIONS (2)
  - Deafness neurosensory [Recovered/Resolved]
  - Ototoxicity [Recovered/Resolved]
